FAERS Safety Report 21756554 (Version 2)
Quarter: 2022Q4

REPORT INFORMATION
  Report Type: Spontaneous
  Country: US (occurrence: None)
  Receive Date: 20221220
  Receipt Date: 20221221
  Transmission Date: 20230113
  Serious: Yes (Other)
  Sender: FDA-Public Use
  Company Number: 2022A405308

PATIENT
  Sex: Female

DRUGS (1)
  1. SEROQUEL [Suspect]
     Active Substance: QUETIAPINE FUMARATE
     Indication: Bipolar disorder
     Dosage: SEROQUEL 800 TO 1000 MG
     Route: 048

REACTIONS (20)
  - Foetal malformation [Unknown]
  - Suicidal behaviour [Unknown]
  - Abortion [Unknown]
  - Homicidal ideation [Unknown]
  - Menopause [Not Recovered/Not Resolved]
  - Polymenorrhoea [Unknown]
  - Behaviour disorder [Unknown]
  - Memory impairment [Not Recovered/Not Resolved]
  - Insomnia [Not Recovered/Not Resolved]
  - Quality of life decreased [Not Recovered/Not Resolved]
  - Hypersexuality [Unknown]
  - Alcoholism [Unknown]
  - Gastrointestinal disorder [Unknown]
  - Back disorder [Unknown]
  - Abnormal faeces [Not Recovered/Not Resolved]
  - Haemorrhoids [Unknown]
  - Victim of sexual abuse [Not Recovered/Not Resolved]
  - Disturbance in attention [Unknown]
  - Abnormal behaviour [Unknown]
  - Fatigue [Unknown]
